FAERS Safety Report 8203303-8 (Version None)
Quarter: 2012Q1

REPORT INFORMATION
  Report Type: 
  Country: None (occurrence: None)
  Receive Date: 20120312
  Receipt Date: 20120302
  Transmission Date: 20120608
  Serious: Yes (Hospitalization, Other)
  Sender: FDA-Public Use
  Company Number: US-ASTRAZENECA-2010SE19274

PATIENT
  Age: 77 Year
  Sex: Female

DRUGS (2)
  1. SYMBICORT [Suspect]
     Dosage: 80/4.5 MCGS UNKNOWN
     Route: 055
  2. ARIMIDEX [Suspect]
     Route: 048

REACTIONS (5)
  - LUNG NEOPLASM MALIGNANT [None]
  - PAIN [None]
  - INFECTED CYST [None]
  - MALAISE [None]
  - URINARY TRACT INFECTION [None]
